FAERS Safety Report 7450306-7 (Version None)
Quarter: 2011Q2

REPORT INFORMATION
  Report Type: 
  Country: None (occurrence: None)
  Receive Date: 20110429
  Receipt Date: 20110429
  Transmission Date: 20111010
  Serious: Yes (Hospitalization, Other)
  Sender: FDA-Public Use
  Company Number: None

PATIENT
  Age: 58 Year
  Sex: Female
  Weight: 102.0593 kg

DRUGS (2)
  1. ROBITUSSN AC [Concomitant]
  2. CODEINE-GUAIFENESIN 10-100MG/5ML ORAL LIQD QUALTEST [Suspect]
     Indication: RESPIRATORY THERAPY
     Dosage: 15ML 4HRS AS NEEDED PO
     Route: 048
     Dates: start: 20110403, end: 20110418

REACTIONS (7)
  - MEDICATION ERROR [None]
  - OROPHARYNGEAL PAIN [None]
  - PHARYNGEAL OEDEMA [None]
  - DYSPHONIA [None]
  - SKIN EXFOLIATION [None]
  - BLISTER [None]
  - DOCUMENTED HYPERSENSITIVITY TO ADMINISTERED DRUG [None]
